FAERS Safety Report 4497493-0 (Version None)
Quarter: 2004Q4

REPORT INFORMATION
  Report Type: 
  Country: None (occurrence: None)
  Receive Date: 20041104
  Receipt Date: 20041025
  Transmission Date: 20050328
  Serious: Yes (Hospitalization)
  Sender: FDA-Public Use
  Company Number: OMPQ-UK-0410S-1301

PATIENT
  Age: 48 Year
  Sex: Female
  Weight: 69 kg

DRUGS (11)
  1. OMNIPAQUE 300 [Suspect]
     Indication: BACK PAIN
     Dosage: 6 ML, SINGLE, DOSE, EPIDURAL
     Route: 008
     Dates: start: 20041008, end: 20041008
  2. OMNIPAQUE 300 [Suspect]
     Indication: SCIATICA
     Dosage: 6 ML, SINGLE, DOSE, EPIDURAL
     Route: 008
     Dates: start: 20041008, end: 20041008
  3. TRIAMCINOLONE ACETONIDE (KENALOG) [Concomitant]
  4. CLONIDINE [Concomitant]
  5. HYDROCORTISONE SODIUM PHOSPHATE (EFCORTESOL) [Concomitant]
  6. EPINEPHRINE (ADRENALINE) [Concomitant]
  7. ROPIVACAINE [Concomitant]
  8. MIDAZOLAM HCL [Concomitant]
  9. PROPOFOL [Concomitant]
  10. FLUMAZENIL (ANEXATE) [Concomitant]
  11. TAMOXIFEN CITRATE [Concomitant]

REACTIONS (4)
  - CONVULSION [None]
  - POST PROCEDURAL COMPLICATION [None]
  - STATUS EPILEPTICUS [None]
  - TACHYCARDIA [None]
